FAERS Safety Report 16477597 (Version 1)
Quarter: 2019Q2

REPORT INFORMATION
  Report Type: Spontaneous
  Country: US (occurrence: US)
  Receive Date: 20190626
  Receipt Date: 20190626
  Transmission Date: 20190711
  Serious: No
  Sender: FDA-Public Use
  Company Number: US-AUROBINDO-AUR-APU-2018-052835

PATIENT

DRUGS (1)
  1. ZOLPIDEM TARTRATE TABLETS 5 MG [Suspect]
     Active Substance: ZOLPIDEM TARTRATE
     Indication: SLEEP DISORDER
     Dosage: 03 TABLETS IN DAY
     Route: 065
     Dates: start: 20181016

REACTIONS (7)
  - Product formulation issue [Unknown]
  - Hypoaesthesia oral [Not Recovered/Not Resolved]
  - Overdose [Unknown]
  - Influenza like illness [Not Recovered/Not Resolved]
  - Pharyngeal swelling [Not Recovered/Not Resolved]
  - Vision blurred [Not Recovered/Not Resolved]
  - Drug ineffective [Unknown]

NARRATIVE: CASE EVENT DATE: 20181016
